FAERS Safety Report 13375112 (Version 2)
Quarter: 2017Q3

REPORT INFORMATION
  Report Type: Report from Study
  Country: None (occurrence: BR)
  Receive Date: 20170327
  Receipt Date: 20170810
  Transmission Date: 20171127
  Serious: Yes (Other)
  Sender: FDA-Public Use
  Company Number: BR-ABBVIE-17P-020-1912822-00

PATIENT
  Age: 35 Year
  Sex: Male
  Weight: 136 kg

DRUGS (11)
  1. ATENOLOL. [Suspect]
     Active Substance: ATENOLOL
     Indication: BLOOD PRESSURE MANAGEMENT
     Route: 048
     Dates: start: 201609, end: 20170309
  2. CHLORTALIDONE [Concomitant]
     Active Substance: CHLORTHALIDONE
     Indication: BLOOD PRESSURE MANAGEMENT
     Route: 048
     Dates: start: 201611
  3. HUMIRA [Suspect]
     Active Substance: ADALIMUMAB
     Indication: PSORIASIS
     Dosage: WEEK 2
     Route: 058
     Dates: start: 2016, end: 2016
  4. HUMIRA [Suspect]
     Active Substance: ADALIMUMAB
     Route: 058
     Dates: start: 2017
  5. FUROSEMIDE. [Concomitant]
     Active Substance: FUROSEMIDE
     Indication: BLOOD PRESSURE MANAGEMENT
     Route: 048
     Dates: start: 201608
  6. VALSARTAN. [Concomitant]
     Active Substance: VALSARTAN
     Indication: BLOOD PRESSURE MANAGEMENT
     Route: 048
  7. FLUOXETINE [Concomitant]
     Active Substance: FLUOXETINE HYDROCHLORIDE
     Indication: DEPRESSION
     Route: 048
  8. HUMIRA [Suspect]
     Active Substance: ADALIMUMAB
     Indication: CROHN^S DISEASE
     Dosage: LOADING DOSE; WEEK ZERO
     Route: 058
     Dates: start: 20160913, end: 20160913
  9. APRESOLINE HYDROCHLORIDE [Concomitant]
     Active Substance: HYDRALAZINE HYDROCHLORIDE
     Indication: BLOOD PRESSURE MANAGEMENT
     Route: 048
     Dates: start: 201608
  10. HUMIRA [Suspect]
     Active Substance: ADALIMUMAB
     Route: 058
     Dates: end: 201706
  11. AMLODIPINE BESYLATE. [Concomitant]
     Active Substance: AMLODIPINE BESYLATE
     Indication: BLOOD PRESSURE MANAGEMENT
     Route: 048

REACTIONS (10)
  - Psoriasis [Not Recovered/Not Resolved]
  - Depression [Recovering/Resolving]
  - Drug effect decreased [Unknown]
  - Skin irritation [Not Recovered/Not Resolved]
  - Hypertension [Unknown]
  - Skin exfoliation [Not Recovered/Not Resolved]
  - Asthma [Recovered/Resolved]
  - Feeling abnormal [Unknown]
  - Asthmatic crisis [Recovered/Resolved]
  - Erythema [Not Recovered/Not Resolved]

NARRATIVE: CASE EVENT DATE: 201701
